FAERS Safety Report 16771535 (Version 1)
Quarter: 2019Q3

REPORT INFORMATION
  Report Type: Spontaneous
  Country: US (occurrence: US)
  Receive Date: 20190904
  Receipt Date: 20190904
  Transmission Date: 20191005
  Serious: No
  Sender: FDA-Public Use
  Company Number: US-TEVA-2019-US-1101537

PATIENT
  Sex: Female

DRUGS (2)
  1. WARFARIN [Suspect]
     Active Substance: WARFARIN
     Indication: ATRIAL FIBRILLATION
  2. WARFARIN [Suspect]
     Active Substance: WARFARIN
     Indication: CARDIAC VALVE DISEASE
     Dosage: ON MONDAY AND FRIDAY SHE TAKES 1 TABLETS AND THE REST OF WEEK SHE TAKES 2 TABLETS IN THE EVENINGS
     Route: 065
     Dates: start: 2015

REACTIONS (2)
  - Pruritus [Unknown]
  - Rash [Unknown]
